FAERS Safety Report 10176980 (Version 1)
Quarter: 2014Q2

REPORT INFORMATION
  Report Type: Spontaneous
  Country: US (occurrence: US)
  Receive Date: 20140516
  Receipt Date: 20140516
  Transmission Date: 20141212
  Serious: No
  Sender: FDA-Public Use
  Company Number: US-ELI_LILLY_AND_COMPANY-US201405003200

PATIENT
  Age: 76 Year
  Sex: Male

DRUGS (2)
  1. CIALIS [Suspect]
     Indication: ERECTILE DYSFUNCTION
     Dosage: 5 MG, QD
     Route: 048
     Dates: start: 20140508
  2. ETODOLAC [Concomitant]
     Indication: BACK PAIN
     Dosage: 30 MG, UNKNOWN

REACTIONS (2)
  - Vision blurred [Recovered/Resolved]
  - Dizziness [Unknown]
